FAERS Safety Report 8801253 (Version 1)
Quarter: 2012Q4

REPORT INFORMATION
  Report Type: 
  Country: DK (occurrence: DK)
  Receive Date: 20120920
  Receipt Date: 20120920
  Transmission Date: 20130627
  Serious: Yes (Other)
  Sender: FDA-Public Use
  Company Number: DK-ROCHE-GNE323330

PATIENT
  Sex: Female

DRUGS (2)
  1. XOLAIR [Suspect]
     Indication: ASTHMA
     Dosage: UNK
     Route: 058
     Dates: start: 20070501, end: 20100701
  2. XOLAIR [Suspect]
     Route: 058
     Dates: start: 201011

REACTIONS (2)
  - Tooth fracture [Unknown]
  - Asthma [Unknown]
